FAERS Safety Report 10828988 (Version 1)
Quarter: 2015Q1

REPORT INFORMATION
  Report Type: Report from Study
  Country: US (occurrence: US)
  Receive Date: 20150219
  Receipt Date: 20150219
  Transmission Date: 20150721
  Serious: No
  Sender: FDA-Public Use
  Company Number: US-ABBVIE-14K-163-1327660-00

PATIENT
  Age: 42 Year
  Sex: Female

DRUGS (1)
  1. HUMIRA [Suspect]
     Active Substance: ADALIMUMAB
     Indication: PSORIASIS
     Route: 065
     Dates: start: 201202

REACTIONS (4)
  - Fear of injection [Unknown]
  - Injection site pain [Not Recovered/Not Resolved]
  - Psoriasis [Unknown]
  - Inappropriate schedule of drug administration [Unknown]

NARRATIVE: CASE EVENT DATE: 20120201
